FAERS Safety Report 21568830 (Version 1)
Quarter: 2022Q4

REPORT INFORMATION
  Report Type: Report from Study
  Country: US (occurrence: US)
  Receive Date: 20221108
  Receipt Date: 20221108
  Transmission Date: 20230112
  Serious: Yes (Other)
  Sender: FDA-Public Use
  Company Number: US-ABBVIE-4191284

PATIENT

DRUGS (1)
  1. HUMIRA [Suspect]
     Active Substance: ADALIMUMAB
     Indication: Rheumatoid arthritis
     Route: 058

REACTIONS (6)
  - Fall [Unknown]
  - Facial bones fracture [Unknown]
  - Fall [Unknown]
  - Head injury [Unknown]
  - Upper limb fracture [Unknown]
  - Ligament rupture [Unknown]

NARRATIVE: CASE EVENT DATE: 20200101
